FAERS Safety Report 21233494 (Version 2)
Quarter: 2022Q3

REPORT INFORMATION
  Report Type: Report from Study
  Country: US (occurrence: US)
  Receive Date: 20220819
  Receipt Date: 20220912
  Transmission Date: 20221026
  Serious: Yes (Other)
  Sender: FDA-Public Use
  Company Number: US-OTSUKA-2022_034689

PATIENT
  Age: 56 Year
  Sex: Male
  Weight: 99.79 kg

DRUGS (10)
  1. TOLVAPTAN [Suspect]
     Active Substance: TOLVAPTAN
     Indication: Congenital cystic kidney disease
     Dosage: 45 MG,  (UPON WAKING)
     Route: 048
     Dates: start: 20220612, end: 20220712
  2. TOLVAPTAN [Suspect]
     Active Substance: TOLVAPTAN
     Indication: Congenital cystic kidney disease
     Dosage: 15 MG,  (8 HOURS LATER)
     Route: 048
     Dates: start: 20220612, end: 20220712
  3. VITAMIN D3 [Concomitant]
     Active Substance: CHOLECALCIFEROL
     Indication: Product used for unknown indication
     Dosage: 1 TABLET (1000 UNIT TOAL), QD
     Route: 048
  4. TRICOR [Concomitant]
     Active Substance: FENOFIBRATE
     Indication: Product used for unknown indication
     Dosage: 1 DF, QD
     Route: 048
  5. FERROUS SULFATE [Concomitant]
     Active Substance: FERROUS SULFATE
     Indication: Product used for unknown indication
     Dosage: 325 MG, TID WITH MEALS
     Route: 048
  6. HYDRODIURIL [Concomitant]
     Active Substance: HYDROCHLOROTHIAZIDE
     Indication: Product used for unknown indication
     Dosage: 1 DF, QD
     Route: 048
  7. ADALAT [Concomitant]
     Active Substance: NIFEDIPINE
     Indication: Product used for unknown indication
     Dosage: 1 DF, QD
     Route: 048
  8. DITROPAN [Concomitant]
     Active Substance: OXYBUTYNIN CHLORIDE
     Indication: Product used for unknown indication
     Dosage: 1 DF, QD
     Route: 048
  9. SODIUM BICARBONATE [Concomitant]
     Active Substance: SODIUM BICARBONATE
     Indication: Product used for unknown indication
     Dosage: 1 DF, BID
     Route: 048
  10. FLOMAX [Concomitant]
     Active Substance: TAMSULOSIN HYDROCHLORIDE
     Indication: Product used for unknown indication
     Dosage: 1 DF, AT NIGHT TIME
     Route: 048

REACTIONS (9)
  - Gamma-glutamyltransferase increased [Not Recovered/Not Resolved]
  - Blood urea increased [Unknown]
  - Nausea [Unknown]
  - Blood creatinine increased [Unknown]
  - Blood potassium increased [Recovered/Resolved]
  - Glomerular filtration rate decreased [Unknown]
  - Alanine aminotransferase increased [Recovered/Resolved]
  - Thirst [Unknown]
  - Product dose omission issue [Unknown]

NARRATIVE: CASE EVENT DATE: 20220624
